FAERS Safety Report 9452289 (Version 1)
Quarter: 2013Q3

REPORT INFORMATION
  Report Type: Spontaneous
  Country: US (occurrence: None)
  Receive Date: 20130808
  Receipt Date: 20130808
  Transmission Date: 20140515
  Serious: No
  Sender: FDA-Public Use
  Company Number: None

PATIENT
  Age: 80 None
  Sex: Female
  Weight: 99.79 kg

DRUGS (13)
  1. SMZ/TMP DS 800-160 TAB (GENERIC) [Suspect]
     Indication: ARTHROPOD BITE
     Dosage: 2O 2X DAY MOUTH
     Route: 048
     Dates: start: 20130702, end: 20130708
  2. AVAPRO [Concomitant]
  3. HYDROCHLOROT [Concomitant]
  4. METOPROLOL [Concomitant]
  5. ASPIRIN [Concomitant]
  6. OSCAL [Concomitant]
  7. CENTRIUM SILVER [Concomitant]
  8. BIOTIN [Concomitant]
  9. OMEGA FISH OIL [Concomitant]
  10. LUTEIN [Concomitant]
  11. HYDROXYZINE [Concomitant]
  12. CLARITIN [Concomitant]
  13. TRIAMCINOLONE [Concomitant]

REACTIONS (5)
  - Arthropod bite [None]
  - Local swelling [None]
  - Erythema [None]
  - Feeling hot [None]
  - Rash pruritic [None]
